FAERS Safety Report 13761201 (Version 1)
Quarter: 2017Q3

REPORT INFORMATION
  Report Type: Report from Study
  Country: US (occurrence: US)
  Receive Date: 20170717
  Receipt Date: 20170717
  Transmission Date: 20171127
  Serious: Yes (Hospitalization)
  Sender: FDA-Public Use
  Company Number: US-ACTELION-A-US2016-140846

PATIENT
  Age: 76 Year
  Sex: Female
  Weight: 73.92 kg

DRUGS (16)
  1. OPSUMIT [Suspect]
     Active Substance: MACITENTAN
     Indication: PULMONARY HYPERTENSION
     Dosage: 10 MG, QD
     Route: 048
     Dates: start: 20160727, end: 20170427
  2. COQ10 [Concomitant]
     Active Substance: UBIDECARENONE
     Dosage: 200 MG, QD
  3. DIGOXIN. [Concomitant]
     Active Substance: DIGOXIN
     Dosage: 0.625 MG, QD
  4. PRAVASTATIN. [Concomitant]
     Active Substance: PRAVASTATIN
     Dosage: 80 MG, QD
  5. COUMADIN [Concomitant]
     Active Substance: WARFARIN SODIUM
     Dosage: 5MG TUESDAY - SUNDAY, 7.5MG ON MONDAY
  6. POTASSIUM [Concomitant]
     Active Substance: POTASSIUM
     Dosage: 10 MCG 6 TABS IN AM, 10 MCG 6 TAB IN PM
  7. VITAMIN B6 [Concomitant]
     Active Substance: PYRIDOXINE HYDROCHLORIDE
     Dosage: 50 MG, QD
  8. TOPROL XL [Concomitant]
     Active Substance: METOPROLOL SUCCINATE
     Dosage: 25 MG, QD
  9. ZAROXOLYN [Concomitant]
     Active Substance: METOLAZONE
     Dosage: 2.5 MG, QD
  10. VITAMIN C [Concomitant]
     Active Substance: ASCORBIC ACID
     Dosage: 1000 MG, BID
  11. CALCIUM D [Concomitant]
     Active Substance: CALCIUM\VITAMIN D
     Dosage: 600 MG, BID
  12. LEXAPRO [Concomitant]
     Active Substance: ESCITALOPRAM OXALATE
     Dosage: 10 MG, QD
  13. DEMADEX [Concomitant]
     Active Substance: TORSEMIDE
     Dosage: 20 MG 3 TABS IN AM
     Dates: start: 2017
  14. ALDACTONE [Concomitant]
     Active Substance: SPIRONOLACTONE
     Dosage: UNK, QD
  15. FISH OIL [Concomitant]
     Active Substance: FISH OIL
     Dosage: 1000 MG, QD
  16. VITAMIN E [Concomitant]
     Active Substance: .ALPHA.-TOCOPHEROL
     Dosage: 200 MG, QD

REACTIONS (41)
  - Cardiomegaly [Recovered/Resolved with Sequelae]
  - Oropharyngeal pain [Unknown]
  - Dizziness [Unknown]
  - Fall [Unknown]
  - Balance disorder [Unknown]
  - Gait disturbance [Not Recovered/Not Resolved]
  - Pleural effusion [Not Recovered/Not Resolved]
  - Loss of consciousness [Unknown]
  - Oedema peripheral [Unknown]
  - Confusional state [Recovered/Resolved with Sequelae]
  - Oedema [Recovered/Resolved with Sequelae]
  - Nausea [Unknown]
  - Pruritus [Unknown]
  - Vomiting [Recovered/Resolved]
  - Cough [Not Recovered/Not Resolved]
  - Insomnia [Not Recovered/Not Resolved]
  - Malaise [Unknown]
  - Sputum discoloured [Recovered/Resolved with Sequelae]
  - Pain [Recovered/Resolved with Sequelae]
  - Metabolic encephalopathy [Recovered/Resolved with Sequelae]
  - Asthenia [Recovered/Resolved with Sequelae]
  - Exercise tolerance decreased [Unknown]
  - Nausea [Unknown]
  - Sepsis [Recovered/Resolved with Sequelae]
  - Productive cough [Unknown]
  - Nasal congestion [Unknown]
  - Nightmare [Unknown]
  - Memory impairment [Unknown]
  - Chest pain [Recovered/Resolved with Sequelae]
  - Pyrexia [Recovered/Resolved with Sequelae]
  - Sleep disorder [Unknown]
  - Asthenia [Recovered/Resolved with Sequelae]
  - Constipation [Unknown]
  - Dyspnoea [Unknown]
  - Nocturnal dyspnoea [Unknown]
  - Abdominal discomfort [Not Recovered/Not Resolved]
  - Oxygen saturation decreased [Unknown]
  - International normalised ratio increased [Recovered/Resolved with Sequelae]
  - Fatigue [Recovered/Resolved with Sequelae]
  - Hypoxia [Recovered/Resolved with Sequelae]
  - Sputum increased [Not Recovered/Not Resolved]

NARRATIVE: CASE EVENT DATE: 201607
